FAERS Safety Report 20552870 (Version 6)
Quarter: 2022Q4

REPORT INFORMATION
  Report Type: Report from Study
  Country: DE (occurrence: DE)
  Receive Date: 20220304
  Receipt Date: 20221027
  Transmission Date: 20230113
  Serious: Yes (Hospitalization)
  Sender: FDA-Public Use
  Company Number: DE-NOVARTISPH-NVSC2022DE029371

PATIENT
  Age: 59 Year
  Sex: Male
  Weight: 98 kg

DRUGS (12)
  1. ISCALIMAB [Suspect]
     Active Substance: ISCALIMAB
     Indication: Liver transplant
     Dosage: 2880 MG, ONCE
     Route: 042
     Dates: start: 20200207
  2. ISCALIMAB [Suspect]
     Active Substance: ISCALIMAB
     Dosage: 1440 MG, ONCE
     Route: 042
     Dates: start: 20200214
  3. ISCALIMAB [Suspect]
     Active Substance: ISCALIMAB
     Dosage: 600 MG, Q2W (ONCE IN 2 WEEKS)
     Route: 058
     Dates: start: 20200228
  4. TACROLIMUS [Suspect]
     Active Substance: TACROLIMUS
     Indication: Liver transplant
     Dosage: 6 MG, BID (2 TIMES PER DAY)
     Route: 048
     Dates: start: 20200207
  5. CARVEDILOL [Concomitant]
     Active Substance: CARVEDILOL
     Indication: Varices oesophageal
     Dosage: UNK
     Route: 065
     Dates: start: 201902
  6. CARVEDILOL [Concomitant]
     Active Substance: CARVEDILOL
     Indication: Atrial fibrillation
  7. DALTEPARIN [Concomitant]
     Active Substance: DALTEPARIN
     Indication: Thrombosis prophylaxis
     Dosage: UNK
     Route: 065
     Dates: start: 20220122, end: 20220311
  8. METAMIZOL [Concomitant]
     Active Substance: METAMIZOLE SODIUM
     Indication: Procedural pain
     Dosage: UNK
     Route: 065
     Dates: start: 20220121, end: 202202
  9. NALOXONE [Concomitant]
     Active Substance: NALOXONE
     Indication: Procedural pain
     Dosage: UNK
     Route: 065
     Dates: start: 20220121, end: 202202
  10. IBUPROFEN [Concomitant]
     Active Substance: IBUPROFEN
     Indication: Procedural pain
     Dosage: UNK
     Route: 065
     Dates: start: 20220128, end: 20220331
  11. URSODIOL [Concomitant]
     Active Substance: URSODIOL
     Indication: Prophylaxis
     Dosage: UNK
     Route: 065
     Dates: start: 20201106
  12. PANTOZOL [Concomitant]
     Active Substance: PANTOPRAZOLE SODIUM
     Indication: Prophylaxis against gastrointestinal ulcer
     Dosage: UNK
     Route: 065
     Dates: start: 20200205

REACTIONS (1)
  - Seroma [Recovered/Resolved]

NARRATIVE: CASE EVENT DATE: 20220131
